FAERS Safety Report 9163311 (Version 1)
Quarter: 2013Q1

REPORT INFORMATION
  Report Type: Spontaneous
  Country: US (occurrence: None)
  Receive Date: 20130222
  Receipt Date: 20130222
  Transmission Date: 20140127
  Serious: Yes (Other)
  Sender: FDA-Public Use
  Company Number: ACO_26089_2011

PATIENT
  Age: 46 Year
  Sex: Female
  Weight: 56.2 kg

DRUGS (4)
  1. AMPYRA (DALFAMPRIDINE) TABLET, 10MG [Suspect]
     Indication: GAIT DISTURBANCE
     Route: 048
     Dates: start: 2011, end: 201106
  2. GILENYA [Concomitant]
  3. ALPRAZOLAM (ALPRAZOLAM) [Concomitant]
  4. VITAMINS NOS (VITAMINS NOS) [Concomitant]

REACTIONS (4)
  - Head titubation [None]
  - Speech disorder [None]
  - Condition aggravated [None]
  - Convulsion [None]
